FAERS Safety Report 7514625-8 (Version None)
Quarter: 2011Q2

REPORT INFORMATION
  Report Type: 
  Country: None (occurrence: None)
  Receive Date: 20110526
  Receipt Date: 20110526
  Transmission Date: 20111010
  Serious: No
  Sender: FDA-Public Use
  Company Number: None

PATIENT
  Age: 69 Year
  Sex: Male
  Weight: 56.246 kg

DRUGS (1)
  1. TERAZOSIN HCL [Suspect]
     Indication: DYSURIA
     Dosage: 5 MG 1 A DAY MOUTH EVERYDAY
     Route: 048

REACTIONS (3)
  - WEIGHT DECREASED [None]
  - FLATULENCE [None]
  - DIABETES MELLITUS [None]
